FAERS Safety Report 17994252 (Version 1)
Quarter: 2020Q3

REPORT INFORMATION
  Report Type: Spontaneous
  Country: US (occurrence: US)
  Receive Date: 20200708
  Receipt Date: 20200708
  Transmission Date: 20201103
  Serious: No
  Sender: FDA-Public Use
  Company Number: US-PFIZER INC-2020260437

PATIENT
  Age: 60 Year
  Sex: Male

DRUGS (2)
  1. PHENOBARBITAL. [Concomitant]
     Active Substance: PHENOBARBITAL
     Indication: SEIZURE
     Dosage: 97.2 MG, DAILY, (32.4MG TABLET, 2 TABLETS IN THE MORNING AND ONE TABLET IN THE EVENING BY MOUTH )
  2. PHENYTOIN. [Suspect]
     Active Substance: PHENYTOIN
     Indication: SEIZURE
     Dosage: 500 MG, DAILY, (THREE CAPSULES IN THE MORNING AND TWO CAPSULES IN THE EVENING BY MOUTH)
     Route: 048

REACTIONS (1)
  - Drug ineffective [Unknown]
